FAERS Safety Report 12046937 (Version 1)
Quarter: 2016Q1

REPORT INFORMATION
  Report Type: Report from Study
  Country: US (occurrence: US)
  Receive Date: 20160209
  Receipt Date: 20160209
  Transmission Date: 20160526
  Serious: Yes (Death, Hospitalization)
  Sender: FDA-Public Use
  Company Number: US-ROCHE-372746

PATIENT
  Age: 52 Year
  Sex: Male
  Weight: 56 kg

DRUGS (5)
  1. BEVACIZUMAB [Suspect]
     Active Substance: BEVACIZUMAB
     Dosage: LAST DOSE PRIOR TO SAE
     Route: 042
  2. ERLOTINIB [Suspect]
     Active Substance: ERLOTINIB
     Dosage: LAST DOSE PRIOR TO SAE
     Route: 048
  3. ERLOTINIB [Suspect]
     Active Substance: ERLOTINIB
     Indication: LIP AND/OR ORAL CAVITY CANCER
     Route: 048
     Dates: start: 20040420, end: 20040514
  4. BEVACIZUMAB [Suspect]
     Active Substance: BEVACIZUMAB
     Indication: LIP AND/OR ORAL CAVITY CANCER
     Dosage: DAY 1 EVERY 21 DAYS
     Route: 042
     Dates: start: 20040420, end: 20040504
  5. METHOTREXATE [Suspect]
     Active Substance: METHOTREXATE
     Indication: PRODUCT USED FOR UNKNOWN INDICATION
     Route: 065

REACTIONS (8)
  - Gastrointestinal haemorrhage [Recovered/Resolved]
  - Mucosal inflammation [Unknown]
  - Abdominal pain [Not Recovered/Not Resolved]
  - Cardio-respiratory arrest [Fatal]
  - Lip and/or oral cavity cancer [Unknown]
  - Pneumatosis intestinalis [Fatal]
  - Oesophagitis [Recovered/Resolved]
  - Oesophagitis [Recovered/Resolved]

NARRATIVE: CASE EVENT DATE: 20040514
